FAERS Safety Report 7128418-7 (Version None)
Quarter: 2010Q4

REPORT INFORMATION
  Report Type: 
  Country: None (occurrence: None)
  Receive Date: 20101115
  Receipt Date: 20101028
  Transmission Date: 20110411
  Serious: Yes (Hospitalization)
  Sender: FDA-Public Use
  Company Number: GER/UKI/10/0016521

PATIENT
  Age: 53 Year
  Sex: Male

DRUGS (6)
  1. FLUOXETINE [Suspect]
     Indication: DEPRESSION
     Dosage: 40 MG, 1 IN 1 D, ORAL
     Route: 048
     Dates: end: 20101014
  2. ACAMPROSATE [Concomitant]
  3. CLOBETASOL [Concomitant]
  4. THIAMINE [Concomitant]
  5. TRIMOVATE (TRIMOVATE /01814301/) [Concomitant]
  6. VITAMIN SUPPLEMENT (VITAMIN NOS) [Concomitant]

REACTIONS (3)
  - LICHEN PLANUS [None]
  - ORAL LICHEN PLANUS [None]
  - THYROXINE DECREASED [None]
